FAERS Safety Report 6896533-9 (Version None)
Quarter: 2010Q3

REPORT INFORMATION
  Report Type: 
  Country: None (occurrence: None)
  Receive Date: 20100722
  Receipt Date: 20100715
  Transmission Date: 20110219
  Serious: Yes (Disabling)
  Sender: FDA-Public Use
  Company Number: 2010022952

PATIENT
  Sex: Female

DRUGS (15)
  1. VIVAGLOBIN [Suspect]
     Indication: IMMUNODEFICIENCY COMMON VARIABLE
     Dosage: (20 ML, 20 ML (3.2 G) TWICE WEEKLY IN 4 SITES ON THIGHS OVER 0.5 TO 3 HOURS SUBCUTANEOUS)
     Route: 058
     Dates: start: 20090901
  2. VIVAGLOBIN [Suspect]
     Indication: PRIMARY IMMUNODEFICIENCY SYNDROME
     Dosage: (20 ML, 20 ML (3.2 G) TWICE WEEKLY IN 4 SITES ON THIGHS OVER 0.5 TO 3 HOURS SUBCUTANEOUS)
     Route: 058
     Dates: start: 20090901
  3. ADVAIR 250/50 (SERETIDE) [Concomitant]
  4. SINGULAIR [Concomitant]
  5. NASONEX [Concomitant]
  6. BENADRYL [Concomitant]
  7. OPTIVAR [Concomitant]
  8. AVELOX [Concomitant]
  9. CLARITHROMYCIN [Concomitant]
  10. XENOPEX (LEVOSALBUTAMOL) [Concomitant]
  11. ASCORBIC ACID [Concomitant]
  12. OS-CAL 500+D (OS-CAL) [Concomitant]
  13. VITAMIN B COMPLEX (VITAMIN B) [Concomitant]
  14. MAGNESIUM (MAGNESIUM) [Concomitant]
  15. VAGIFEM [Concomitant]

REACTIONS (16)
  - AFFECT LABILITY [None]
  - BRONCHITIS [None]
  - CRYING [None]
  - FATIGUE [None]
  - FEELING ABNORMAL [None]
  - FLUID RETENTION [None]
  - HUNGER [None]
  - INFUSION SITE DISCOMFORT [None]
  - INFUSION SITE ERYTHEMA [None]
  - INFUSION SITE PAIN [None]
  - INFUSION SITE PRURITUS [None]
  - INFUSION SITE REACTION [None]
  - INFUSION SITE SWELLING [None]
  - PNEUMONIA [None]
  - URTICARIA [None]
  - WEIGHT INCREASED [None]
